FAERS Safety Report 4896880-6 (Version None)
Quarter: 2006Q1

REPORT INFORMATION
  Report Type: 
  Country: None (occurrence: None)
  Receive Date: 20060126
  Receipt Date: 20060113
  Transmission Date: 20060701
  Serious: Yes (Hospitalization, Disabling)
  Sender: FDA-Public Use
  Company Number: 200610039BYL

PATIENT
  Age: 61 Year
  Sex: Male
  Weight: 62 kg

DRUGS (3)
  1. ASPIRIN [Suspect]
     Indication: LACUNAR INFARCTION
     Dosage: 100 MG, QD, ORAL
     Route: 048
     Dates: start: 20051222, end: 20060111
  2. TAKEPRON [Concomitant]
  3. OZAGREL [Concomitant]

REACTIONS (3)
  - BLOOD PRESSURE INCREASED [None]
  - BRAIN OEDEMA [None]
  - THALAMUS HAEMORRHAGE [None]
